FAERS Safety Report 4576217-2 (Version None)
Quarter: 2005Q1

REPORT INFORMATION
  Report Type: 
  Country: None (occurrence: None)
  Receive Date: 20050207
  Receipt Date: 20050131
  Transmission Date: 20050727
  Serious: Yes (Hospitalization)
  Sender: FDA-Public Use
  Company Number: K200500164

PATIENT
  Age: 73 Year
  Sex: Male

DRUGS (5)
  1. ALTACE [Suspect]
     Indication: ESSENTIAL HYPERTENSION
     Dosage: 1.25 MG, QD, ORAL
     Route: 048
     Dates: start: 20041021
  2. ACUPAN [Suspect]
     Dosage: INTRAVENOUS
     Route: 042
  3. ACTRAPID HUMAN (INSULIN HUMAN) [Suspect]
     Dosage: SUBCUTANEOUS
     Route: 058
  4. ELISOR (PRAVASTATIN SODIUM) CA [Suspect]
     Dosage: 40 MG, QD, ORAL
     Route: 048
  5. HEPARIN SODIUM [Suspect]
     Dosage: INTRAVENOUS
     Route: 042

REACTIONS (2)
  - HEPARIN-INDUCED THROMBOCYTOPENIA [None]
  - THROMBOPHLEBITIS [None]
